FAERS Safety Report 7655952-3 (Version None)
Quarter: 2011Q3

REPORT INFORMATION
  Report Type: 
  Country: None (occurrence: None)
  Receive Date: 20110804
  Receipt Date: 20110729
  Transmission Date: 20111222
  Serious: Yes (Other)
  Sender: FDA-Public Use
  Company Number: BR-SANOFI-AVENTIS-2011SA049025

PATIENT
  Age: 30 Year
  Sex: Female
  Weight: 72 kg

DRUGS (5)
  1. APIDRA SOLOSTAR [Suspect]
     Indication: TYPE 1 DIABETES MELLITUS
     Route: 058
     Dates: start: 20110301
  2. SOLOSTAR [Suspect]
  3. NPH INSULIN [Concomitant]
     Route: 058
  4. MULTI-VITAMINS [Concomitant]
     Route: 048
     Dates: start: 20110201
  5. BROMOPRIDE [Concomitant]
     Route: 048

REACTIONS (2)
  - MATERNAL EXPOSURE DURING PREGNANCY [None]
  - LARGE FOR DATES BABY [None]
